FAERS Safety Report 4358683-0 (Version None)
Quarter: 2004Q2

REPORT INFORMATION
  Report Type: 
  Country: None (occurrence: None)
  Receive Date: 20040514
  Receipt Date: 20040514
  Transmission Date: 20050107
  Serious: Yes (Other)
  Sender: FDA-Public Use
  Company Number: None

PATIENT
  Sex: Female
  Weight: 95.709 kg

DRUGS (1)
  1. OXALIPLATIN [Suspect]
     Indication: COLON CANCER METASTATIC
     Dosage: 168 MG Q 2 WEEK INTRAVENOUS
     Route: 042
     Dates: start: 20040213, end: 20040412

REACTIONS (4)
  - CATHETER RELATED COMPLICATION [None]
  - FLUSHING [None]
  - SWELLING FACE [None]
  - TYPE IV HYPERSENSITIVITY REACTION [None]
